FAERS Safety Report 7478806-4 (Version None)
Quarter: 2011Q2

REPORT INFORMATION
  Report Type: 
  Country: None (occurrence: None)
  Receive Date: 20110513
  Receipt Date: 20110506
  Transmission Date: 20111010
  Serious: Yes (Death)
  Sender: FDA-Public Use
  Company Number: US-JNJFOC-20110504457

PATIENT
  Sex: Male
  Weight: 96.62 kg

DRUGS (21)
  1. LIPITOR [Concomitant]
     Route: 065
  2. CITALOPRAM HYDROBROMIDE [Concomitant]
     Route: 065
  3. IMDUR [Concomitant]
     Route: 065
  4. NESIRITIDE [Suspect]
     Indication: CARDIAC FAILURE CONGESTIVE
     Route: 042
  5. NESIRITIDE [Suspect]
     Route: 042
  6. LASIX [Concomitant]
     Route: 065
  7. METOPROLOL SUCCINATE [Concomitant]
     Route: 065
  8. ACETAMINOPHEN AND HYDROCODONE BITARTRATE [Concomitant]
     Route: 065
  9. LASIX [Concomitant]
     Route: 065
  10. ASPIRIN [Concomitant]
     Route: 065
  11. AMLODIPINE BESYLATE [Concomitant]
     Route: 065
  12. PLAVIX [Concomitant]
     Route: 065
  13. POTASSIUM CHLORIDE [Concomitant]
     Route: 065
  14. HYDRALAZINE HCL [Concomitant]
     Route: 065
  15. SENNA-MINT WAF [Concomitant]
     Route: 065
  16. CLEVIPREX [Suspect]
     Indication: BLOOD PRESSURE
     Route: 042
  17. CAPTOPRIL [Concomitant]
     Route: 065
  18. DUONEB [Concomitant]
     Route: 065
  19. MULTIPLE VITAMIN [Concomitant]
     Route: 065
  20. DOCUSATE [Concomitant]
     Route: 065
  21. MILK OF MAGNESIA TAB [Concomitant]
     Route: 065

REACTIONS (1)
  - CARDIAC FAILURE [None]
